FAERS Safety Report 23729922 (Version 1)
Quarter: 2024Q2

REPORT INFORMATION
  Report Type: Spontaneous
  Country: CN (occurrence: CN)
  Receive Date: 20240411
  Receipt Date: 20240411
  Transmission Date: 20240716
  Serious: Yes (Other)
  Sender: FDA-Public Use
  Company Number: None

PATIENT
  Age: 52 Year
  Sex: Female
  Weight: 48 kg

DRUGS (3)
  1. MANNITOL [Suspect]
     Active Substance: MANNITOL
     Indication: Diuretic therapy
     Dosage: (DOSAGE FORM: INJECTION), 25G/125 ML ONCE DAILY
     Route: 041
     Dates: start: 20240330, end: 20240330
  2. MANNITOL [Suspect]
     Active Substance: MANNITOL
     Indication: Oedema
  3. MANNITOL [Suspect]
     Active Substance: MANNITOL
     Indication: Ankle fracture

REACTIONS (3)
  - Pruritus [Recovering/Resolving]
  - Rash [Recovering/Resolving]
  - Erythema [Unknown]

NARRATIVE: CASE EVENT DATE: 20240330
